FAERS Safety Report 16363037 (Version 1)
Quarter: 2019Q2

REPORT INFORMATION
  Report Type: Spontaneous
  Country: GB (occurrence: GB)
  Receive Date: 20190528
  Receipt Date: 20190528
  Transmission Date: 20190711
  Serious: Yes (Other)
  Sender: FDA-Public Use
  Company Number: GB-AMREGENT-20191022

PATIENT
  Age: 77 Year
  Sex: Male

DRUGS (2)
  1. ANTIPLATELET [Concomitant]
     Active Substance: UNSPECIFIED INGREDIENT
     Dosage: UNKNOWN
     Route: 065
  2. FERINJECT [Suspect]
     Active Substance: FERRIC CARBOXYMALTOSE
     Dosage: UNKNOWN
     Route: 041

REACTIONS (1)
  - Melaena [Unknown]
